FAERS Safety Report 5756977-5 (Version None)
Quarter: 2008Q2

REPORT INFORMATION
  Report Type: 
  Country: None (occurrence: None)
  Receive Date: 20080529
  Receipt Date: 20080520
  Transmission Date: 20081010
  Serious: Yes (Other)
  Sender: FDA-Public Use
  Company Number: CHPA2008US08538

PATIENT
  Age: 38 Year
  Sex: Male
  Weight: 81.6 kg

DRUGS (2)
  1. MAALOX ANTIACID/ANTIGAS MAX STR MULTI SYMPTOM (NCH)(MAGNESIUM HYDROXID [Suspect]
     Indication: ABDOMINAL PAIN UPPER
     Dosage: DRANK FROM THE BOTTLE,  ORAL
     Route: 048
     Dates: start: 20080519
  2. PEPCID [Suspect]
     Indication: DYSPEPSIA
     Dosage: 2 DF, ONCE/SINGLE, ORAL
     Route: 048
     Dates: start: 20080519

REACTIONS (5)
  - DRUG INEFFECTIVE [None]
  - FEELING HOT [None]
  - OVERDOSE [None]
  - PARAESTHESIA [None]
  - WRONG TECHNIQUE IN DRUG USAGE PROCESS [None]
